FAERS Safety Report 24383493 (Version 1)
Quarter: 2024Q4

REPORT INFORMATION
  Report Type: Report from Study
  Country: JP (occurrence: JP)
  Receive Date: 20241001
  Receipt Date: 20241001
  Transmission Date: 20250115
  Serious: Yes (Death, Other)
  Sender: NOVARTIS
  Company Number: JP-002147023-NVSJ2021JP008599

PATIENT
  Age: 64 Year
  Sex: Male
  Weight: 55 kg

DRUGS (4)
  1. KYMRIAH [Suspect]
     Active Substance: TISAGENLECLEUCEL
     Indication: Diffuse large B-cell lymphoma
     Dosage: FULL DOSE ADMINISTRATION, TOTAL NUMBER OF CELLS ADMINISTERED: 2.7X10^8
     Route: 041
     Dates: start: 20210507
  2. CYCLOPHOSPHAMIDE [Concomitant]
     Active Substance: CYCLOPHOSPHAMIDE
     Indication: Lymphodepletion
     Dosage: 250 MG/M2
     Route: 065
  3. TOCILIZUMAB [Concomitant]
     Active Substance: TOCILIZUMAB
     Indication: Cytokine release syndrome
     Dosage: UNK
     Route: 065
  4. TOCILIZUMAB [Concomitant]
     Active Substance: TOCILIZUMAB
     Dosage: MORE THAN 2 TIMES
     Route: 065

REACTIONS (13)
  - Myelodysplastic syndrome [Fatal]
  - Second primary malignancy [Fatal]
  - Cytokine release syndrome [Recovered/Resolved]
  - Pyrexia [Unknown]
  - Platelet count decreased [Unknown]
  - Hypogammaglobulinaemia [Recovered/Resolved]
  - Lymphocyte count decreased [Unknown]
  - Haemoglobin decreased [Unknown]
  - Neutrophil count decreased [Unknown]
  - Diffuse large B-cell lymphoma recurrent [Recovered/Resolved]
  - Metastases to lymph nodes [Unknown]
  - Diffuse large B-cell lymphoma [Recovered/Resolved]
  - Malignant neoplasm progression [Recovered/Resolved]

NARRATIVE: CASE EVENT DATE: 20210510
